FAERS Safety Report 12171106 (Version 1)
Quarter: 2016Q1

REPORT INFORMATION
  Report Type: Report from Study
  Country: DE (occurrence: DE)
  Receive Date: 20160311
  Receipt Date: 20160311
  Transmission Date: 20160526
  Serious: Yes (Death, Hospitalization)
  Sender: FDA-Public Use
  Company Number: DE-BEH-2012032263

PATIENT
  Age: 60 Year
  Sex: Male
  Weight: 72 kg

DRUGS (5)
  1. PRIVIGEN [Suspect]
     Active Substance: HUMAN IMMUNOGLOBULIN G
     Indication: SECONDARY IMMUNODEFICIENCY
     Dosage: INFUSION RATE 1.1 - 2.0 ML/MIN
     Route: 042
     Dates: start: 20120329, end: 20120329
  2. PRIVIGEN [Suspect]
     Active Substance: HUMAN IMMUNOGLOBULIN G
     Indication: CHRONIC LYMPHOCYTIC LEUKAEMIA
     Dosage: INFUSION RATE: 1.0 - 2.3 ML/MIN
     Route: 042
     Dates: start: 20120622, end: 20120622
  3. PANTOZOL [Concomitant]
     Active Substance: PANTOPRAZOLE SODIUM
     Route: 048
  4. ALLOPURINOL 300 [Concomitant]
     Active Substance: ALLOPURINOL
     Route: 048
  5. METOPROLOL. [Concomitant]
     Active Substance: METOPROLOL
     Route: 048

REACTIONS (5)
  - Respiratory failure [Recovered/Resolved]
  - Dyspnoea at rest [Recovered/Resolved]
  - Death [Fatal]
  - Renal failure [Recovered/Resolved]
  - Hospitalisation [Unknown]

NARRATIVE: CASE EVENT DATE: 20120402
